FAERS Safety Report 9453106 (Version 3)
Quarter: 2013Q3

REPORT INFORMATION
  Report Type: Spontaneous
  Country: US (occurrence: US)
  Receive Date: 20130812
  Receipt Date: 20130910
  Transmission Date: 20140515
  Serious: No
  Sender: FDA-Public Use
  Company Number: US-PFIZER INC-2013231369

PATIENT
  Age: 62 Year
  Sex: Male
  Weight: 72.6 kg

DRUGS (3)
  1. ATORVASTATIN CALCIUM [Suspect]
     Indication: BLOOD CHOLESTEROL ABNORMAL
     Dosage: 40 MG, DAILY
     Dates: start: 201307, end: 2013
  2. ATORVASTATIN CALCIUM [Suspect]
     Indication: HYPERTENSION
  3. BABY ASPIRIN [Concomitant]
     Indication: BLOOD PRESSURE ABNORMAL
     Dosage: UNK, DAILY

REACTIONS (9)
  - Nausea [Recovering/Resolving]
  - Malaise [Recovering/Resolving]
  - Diarrhoea [Recovering/Resolving]
  - Constipation [Recovering/Resolving]
  - Feeling abnormal [Recovering/Resolving]
  - Rhinorrhoea [Recovering/Resolving]
  - Drug hypersensitivity [Unknown]
  - Malabsorption [Unknown]
  - Abdominal discomfort [Unknown]
